FAERS Safety Report 10064708 (Version 4)
Quarter: 2015Q3

REPORT INFORMATION
  Report Type: Spontaneous
  Country: US (occurrence: US)
  Receive Date: 20140408
  Receipt Date: 20150727
  Transmission Date: 20151125
  Serious: Yes (Death, Life-Threatening, Hospitalization, Disabling, Other)
  Sender: FDA-Public Use
  Company Number: US-MERCK-1404USA003873

PATIENT
  Sex: Male
  Weight: 60.77 kg

DRUGS (2)
  1. JANUVIA [Suspect]
     Active Substance: SITAGLIPTIN PHOSPHATE
     Indication: TYPE 2 DIABETES MELLITUS
     Dosage: 25 MG, QD
     Route: 048
     Dates: start: 20080429, end: 20080808
  2. JANUVIA [Suspect]
     Active Substance: SITAGLIPTIN PHOSPHATE
     Dosage: 50 MG, QD
     Route: 048
     Dates: start: 20080808, end: 20090220

REACTIONS (34)
  - Metastases to lymph nodes [Unknown]
  - Pancreatic carcinoma recurrent [Unknown]
  - Surgery [Unknown]
  - Pancreatitis chronic [Not Recovered/Not Resolved]
  - Blood glucose increased [Unknown]
  - Abscess [Unknown]
  - Metastases to lung [Unknown]
  - Pancreatic carcinoma recurrent [Unknown]
  - Hepatic lesion [Unknown]
  - Chronic obstructive pulmonary disease [Not Recovered/Not Resolved]
  - Renal cyst [Unknown]
  - Liver function test abnormal [Unknown]
  - Nausea [Unknown]
  - Bile duct stent insertion [Unknown]
  - Hyperglycaemia [Unknown]
  - Post procedural complication [Unknown]
  - Pancreaticoduodenectomy [Unknown]
  - Vomiting [Unknown]
  - Biliary dilatation [Unknown]
  - Pseudocyst [Unknown]
  - Cholecystitis chronic [Not Recovered/Not Resolved]
  - Emphysema [Unknown]
  - Metastases to lung [Unknown]
  - Depression [Unknown]
  - Pneumobilia [Unknown]
  - Metastases to peritoneum [Unknown]
  - Gastric operation [Unknown]
  - Bile duct stenosis [Unknown]
  - Type 1 diabetes mellitus [Unknown]
  - Wound dehiscence [Unknown]
  - Atelectasis [Unknown]
  - Abdominal pain [Unknown]
  - Pancreatic carcinoma metastatic [Fatal]
  - Headache [Unknown]

NARRATIVE: CASE EVENT DATE: 201101
